FAERS Safety Report 6257570-0 (Version None)
Quarter: 2009Q3

REPORT INFORMATION
  Report Type: 
  Country: None (occurrence: None)
  Receive Date: 20090706
  Receipt Date: 20090625
  Transmission Date: 20100115
  Serious: Yes (Other)
  Sender: FDA-Public Use
  Company Number: DK-JNJFOC-20090608549

PATIENT
  Sex: Male

DRUGS (3)
  1. INVEGA [Suspect]
     Indication: SCHIZOPHRENIA
     Route: 048
  2. SINGULAIR [Concomitant]
     Route: 065
  3. MODAFINIL [Concomitant]
     Route: 065

REACTIONS (1)
  - WEIGHT INCREASED [None]
